FAERS Safety Report 12328443 (Version 1)
Quarter: 2016Q2

REPORT INFORMATION
  Report Type: Spontaneous
  Country: US (occurrence: US)
  Receive Date: 20160503
  Receipt Date: 20160503
  Transmission Date: 20160815
  Serious: No
  Sender: FDA-Public Use
  Company Number: US-BEH-2014047274

PATIENT
  Sex: Female
  Weight: 112 kg

DRUGS (33)
  1. EPIPEN [Concomitant]
     Active Substance: EPINEPHRINE
  2. LMX [Concomitant]
     Active Substance: LIDOCAINE
  3. CIPRO [Concomitant]
     Active Substance: CIPROFLOXACIN HYDROCHLORIDE
  4. MUCINEX ER [Concomitant]
  5. PROBIOTIC [Concomitant]
     Active Substance: PROBIOTICS NOS
  6. MULTIVITAMIN [Concomitant]
     Active Substance: VITAMINS
  7. METFORMIN [Concomitant]
     Active Substance: METFORMIN HYDROCHLORIDE
  8. NYSTATIN. [Concomitant]
     Active Substance: NYSTATIN
  9. PROGESTERONE. [Concomitant]
     Active Substance: PROGESTERONE
  10. TESTOSTERONE. [Concomitant]
     Active Substance: TESTOSTERONE
  11. ALEVE [Concomitant]
     Active Substance: NAPROXEN SODIUM
  12. L-LYSINE [Concomitant]
     Active Substance: LYSINE
  13. SYMBICORT [Concomitant]
     Active Substance: BUDESONIDE\FORMOTEROL FUMARATE DIHYDRATE
  14. DIPHENHYDRAMINE. [Concomitant]
     Active Substance: DIPHENHYDRAMINE
  15. VITAMIN B12 [Concomitant]
     Active Substance: CYANOCOBALAMIN
  16. TYLENOL ARTHRITIS PAIN [Concomitant]
     Active Substance: ACETAMINOPHEN
  17. ZANTAC [Concomitant]
     Active Substance: RANITIDINE HYDROCHLORIDE
  18. DHEA [Concomitant]
     Active Substance: PRASTERONE
  19. GRAPE SEED [Concomitant]
  20. SINGULAIR [Concomitant]
     Active Substance: MONTELUKAST SODIUM
  21. HIZENTRA [Suspect]
     Active Substance: HUMAN IMMUNOGLOBULIN G
     Indication: IMMUNODEFICIENCY COMMON VARIABLE
     Route: 058
  22. IRON [Concomitant]
     Active Substance: IRON
  23. EVOXAC [Concomitant]
     Active Substance: CEVIMELINE HYDROCHLORIDE
  24. PREDNISONE. [Concomitant]
     Active Substance: PREDNISONE
  25. PROPANOLOL [Concomitant]
     Active Substance: PROPRANOLOL HYDROCHLORIDE
  26. CYCLOBENZAPRINE [Concomitant]
     Active Substance: CYCLOBENZAPRINE
  27. XOPENEX HFA [Concomitant]
     Active Substance: LEVALBUTEROL TARTRATE
  28. ACETAMINOPHEN. [Concomitant]
     Active Substance: ACETAMINOPHEN
  29. DIFLUCAN [Concomitant]
     Active Substance: FLUCONAZOLE
  30. HYDROXYCHLOROQUINE [Concomitant]
     Active Substance: HYDROXYCHLOROQUINE
  31. FERROUS GLUCONATE [Concomitant]
     Active Substance: FERROUS GLUCONATE
  32. CO ENZYME Q [Concomitant]
  33. ASTELIN [Concomitant]
     Active Substance: AZELASTINE HYDROCHLORIDE

REACTIONS (3)
  - Infusion site rash [Unknown]
  - Infusion site nodule [Unknown]
  - Rash macular [Unknown]
